FAERS Safety Report 8214227-4 (Version None)
Quarter: 2012Q1

REPORT INFORMATION
  Report Type: 
  Country: None (occurrence: None)
  Receive Date: 20120316
  Receipt Date: 20120309
  Transmission Date: 20120608
  Serious: Yes (Hospitalization)
  Sender: FDA-Public Use
  Company Number: US-BAYER-2011-037964

PATIENT
  Age: 42 Year
  Sex: Female
  Weight: 166 kg

DRUGS (9)
  1. PROMETRIUM [Concomitant]
     Dosage: 200 MG, UNK
  2. YAZ [Suspect]
     Indication: DYSFUNCTIONAL UTERINE BLEEDING
     Dosage: 2 DF, QD
     Dates: start: 20061010, end: 20061123
  3. HYDROCHLOROTHIAZIDE [Concomitant]
     Indication: DIURETIC THERAPY
     Dosage: UNK
     Dates: start: 20060506
  4. YASMIN [Suspect]
     Indication: DYSFUNCTIONAL UTERINE BLEEDING
     Dosage: UNK
     Dates: start: 20050308, end: 20050501
  5. XANAX [Concomitant]
     Indication: ANXIETY
     Dosage: UNK
     Dates: start: 20041027
  6. TOPROL-XL [Concomitant]
     Indication: PALPITATIONS
     Dosage: UNK
     Dates: start: 20041201
  7. TOPROL-XL [Concomitant]
     Indication: HEART RATE ABNORMAL
  8. MOTRIN [Concomitant]
     Indication: ANALGESIC THERAPY
  9. XANAX [Concomitant]
     Indication: DEPRESSION

REACTIONS (12)
  - PAIN [None]
  - HEART RATE IRREGULAR [None]
  - EMOTIONAL DISTRESS [None]
  - PULMONARY EMBOLISM [None]
  - DIZZINESS [None]
  - INJURY [None]
  - FEAR [None]
  - GENERAL PHYSICAL HEALTH DETERIORATION [None]
  - CHEST DISCOMFORT [None]
  - PNEUMONIA [None]
  - ANXIETY [None]
  - BREATH SOUNDS ABNORMAL [None]
